FAERS Safety Report 4890448-3 (Version None)
Quarter: 2005Q4

REPORT INFORMATION
  Report Type: 
  Country: None (occurrence: None)
  Receive Date: 20051216
  Receipt Date: 20050929
  Transmission Date: 20060501
  Serious: No
  Sender: FDA-Public Use
  Company Number: BDI-007594

PATIENT
  Age: 61 Year
  Sex: Male

DRUGS (2)
  1. MULTIHANCE [Suspect]
     Indication: COMPUTERISED TOMOGRAM ABNORMAL
     Dosage: 20 ML ONCE IV
     Route: 042
     Dates: start: 20050928, end: 20050928
  2. MULTIHANCE [Suspect]
     Indication: NUCLEAR MAGNETIC RESONANCE IMAGING ABDOMINAL
     Dosage: 20 ML ONCE IV
     Route: 042
     Dates: start: 20050928, end: 20050928

REACTIONS (2)
  - NAUSEA [None]
  - VOMITING [None]
